FAERS Safety Report 7504793-6 (Version None)
Quarter: 2011Q2

REPORT INFORMATION
  Report Type: 
  Country: None (occurrence: None)
  Receive Date: 20110525
  Receipt Date: 20110207
  Transmission Date: 20111010
  Serious: Yes (Other)
  Sender: FDA-Public Use
  Company Number: US-AMGEN-USASP2011007964

PATIENT

DRUGS (1)
  1. ARANESP [Suspect]
     Indication: SICKLE CELL ANAEMIA
     Dosage: UNK

REACTIONS (2)
  - DRUG INEFFECTIVE [None]
  - CARDIAC FAILURE CONGESTIVE [None]
